FAERS Safety Report 9083009 (Version 1)
Quarter: 2013Q1

REPORT INFORMATION
  Report Type: Report from Study
  Country: US (occurrence: US)
  Receive Date: 20130131
  Receipt Date: 20130131
  Transmission Date: 20140127
  Serious: No
  Sender: FDA-Public Use
  Company Number: US-ABBOTT-12P-163-0989674-00

PATIENT
  Age: 83 Year
  Sex: Male

DRUGS (3)
  1. HUMIRA [Suspect]
     Indication: PSORIASIS
     Dates: start: 20100805
  2. NATEGLINIDE [Concomitant]
     Indication: PRODUCT USED FOR UNKNOWN INDICATION
     Dosage: 120MG BEFORE MEALS 2 TIMES A DAY
  3. LUVOX CR [Concomitant]
     Indication: PRODUCT USED FOR UNKNOWN INDICATION
     Dosage: HAPPY PILL

REACTIONS (3)
  - Mass [Not Recovered/Not Resolved]
  - Mass [Not Recovered/Not Resolved]
  - Injection site mass [Not Recovered/Not Resolved]
